FAERS Safety Report 6969013-X (Version None)
Quarter: 2010Q3

REPORT INFORMATION
  Report Type: 
  Country: None (occurrence: None)
  Receive Date: 20100907
  Receipt Date: 20100901
  Transmission Date: 20110219
  Serious: Yes (Death)
  Sender: FDA-Public Use
  Company Number: FR-ASTRAZENECA-2010SE41094

PATIENT
  Age: 17444 Day
  Sex: Male

DRUGS (10)
  1. MEROPENEM [Suspect]
     Indication: PNEUMONIA
     Route: 042
     Dates: start: 20100312, end: 20100318
  2. ZYVOX [Suspect]
     Indication: PNEUMONIA
     Route: 042
     Dates: start: 20100312, end: 20100318
  3. AMIKACIN [Suspect]
     Indication: PNEUMONIA
     Route: 042
     Dates: start: 20100312, end: 20100318
  4. CYCLOSPORINE [Concomitant]
  5. CORTICOIDS [Concomitant]
  6. DOBUTAMIN [Concomitant]
  7. CORDARONE [Concomitant]
  8. CIPROFLOXACIN HCL [Concomitant]
     Dates: start: 20100310, end: 20100312
  9. ROCEPHIN [Concomitant]
     Dates: start: 20100310, end: 20100312
  10. GENTAMICINE [Concomitant]
     Dates: start: 20100310, end: 20100312

REACTIONS (2)
  - PANCREATITIS ACUTE [None]
  - PANCREATITIS NECROTISING [None]
